FAERS Safety Report 7796240-4 (Version None)
Quarter: 2011Q4

REPORT INFORMATION
  Report Type: 
  Country: None (occurrence: None)
  Receive Date: 20111004
  Receipt Date: 20110927
  Transmission Date: 20120403
  Serious: Yes (Hospitalization, Disabling, Other)
  Sender: FDA-Public Use
  Company Number: NO-MERCK-1006NOR00002

PATIENT
  Age: 56 Year
  Sex: Female

DRUGS (10)
  1. BECLOMETHASONE DIPROPIONATE [Concomitant]
     Indication: ASTHMA
     Route: 048
  2. FLUTICASONE PROPIONATE [Concomitant]
     Indication: ASTHMA
     Route: 048
  3. ALBUTEROL SULFATE [Concomitant]
     Route: 048
  4. SINGULAIR [Suspect]
     Indication: ASTHMA
     Route: 048
     Dates: start: 20070423, end: 20080101
  5. BUDESONIDE AND FORMOTEROL FUMARATE [Concomitant]
     Indication: ASTHMA
     Route: 048
  6. SINGULAIR [Suspect]
     Route: 048
     Dates: start: 20080201, end: 20090601
  7. SINGULAIR [Suspect]
     Route: 048
     Dates: start: 20030312, end: 20030301
  8. ALBUTEROL SULFATE [Concomitant]
     Indication: ASTHMA
     Route: 048
  9. IPRATROPIUM BROMIDE [Concomitant]
     Indication: ASTHMA
     Route: 048
  10. ZOPICLONE [Concomitant]
     Route: 048

REACTIONS (8)
  - EPILEPSY [None]
  - COGNITIVE DISORDER [None]
  - ASTHMA [None]
  - FATIGUE [None]
  - AMNESIA [None]
  - TEMPORAL LOBE EPILEPSY [None]
  - DISTURBANCE IN ATTENTION [None]
  - DIZZINESS [None]
